FAERS Safety Report 15131110 (Version 3)
Quarter: 2018Q3

REPORT INFORMATION
  Report Type: Report from Study
  Country: None (occurrence: US)
  Receive Date: 20180711
  Receipt Date: 20180813
  Transmission Date: 20181010
  Serious: Yes (Hospitalization, Other)
  Sender: FDA-Public Use
  Company Number: US-ABBVIE-18K-163-2396654-00

PATIENT
  Age: 32 Year
  Sex: Female
  Weight: 70.37 kg

DRUGS (3)
  1. HUMIRA [Suspect]
     Active Substance: ADALIMUMAB
     Dosage: DAY 15
     Route: 058
     Dates: start: 20180629, end: 20180629
  2. HUMIRA [Suspect]
     Active Substance: ADALIMUMAB
     Route: 058
     Dates: start: 201807
  3. HUMIRA [Suspect]
     Active Substance: ADALIMUMAB
     Indication: CROHN^S DISEASE
     Dosage: DAY ONE,LOADING DOSE,
     Route: 058
     Dates: start: 20180615, end: 20180615

REACTIONS (20)
  - Dehydration [Recovering/Resolving]
  - Nausea [Recovered/Resolved]
  - Muscle spasms [Recovering/Resolving]
  - Crohn^s disease [Unknown]
  - Vomiting [Recovering/Resolving]
  - Dyspnoea [Unknown]
  - Hyperhidrosis [Recovering/Resolving]
  - Burning sensation [Recovered/Resolved]
  - Muscular weakness [Recovering/Resolving]
  - Loss of consciousness [Recovered/Resolved]
  - Dizziness [Recovering/Resolving]
  - Chest discomfort [Unknown]
  - Nausea [Recovering/Resolving]
  - Tremor [Recovering/Resolving]
  - Fatigue [Recovered/Resolved]
  - Anxiety [Not Recovered/Not Resolved]
  - Asthma [Unknown]
  - Myalgia [Recovering/Resolving]
  - Dizziness [Recovered/Resolved]
  - Vertigo [Recovering/Resolving]

NARRATIVE: CASE EVENT DATE: 2018
